FAERS Safety Report 8046530-5 (Version None)
Quarter: 2012Q1

REPORT INFORMATION
  Report Type: 
  Country: None (occurrence: None)
  Receive Date: 20120113
  Receipt Date: 20120112
  Transmission Date: 20120608
  Serious: Yes (Hospitalization)
  Sender: FDA-Public Use
  Company Number: CA-MERCK-1201USA01672

PATIENT
  Age: 84 Year
  Sex: Female

DRUGS (1)
  1. SINEMET CR [Suspect]
     Route: 048

REACTIONS (3)
  - DYSPHAGIA [None]
  - CEREBROVASCULAR ACCIDENT [None]
  - WRONG TECHNIQUE IN DRUG USAGE PROCESS [None]
